FAERS Safety Report 11599530 (Version 1)
Quarter: 2015Q4

REPORT INFORMATION
  Report Type: Spontaneous
  Country: IT (occurrence: IT)
  Receive Date: 20151006
  Receipt Date: 20151006
  Transmission Date: 20160304
  Serious: Yes (Hospitalization)
  Sender: FDA-Public Use
  Company Number: IT-BAYER-2015-435547

PATIENT
  Age: 44 Year
  Sex: Female

DRUGS (3)
  1. ABILIFY [Concomitant]
     Active Substance: ARIPIPRAZOLE
  2. CARDIOASPIRIN [Suspect]
     Active Substance: ASPIRIN
  3. PRAZENE [Concomitant]
     Active Substance: PRAZEPAM

REACTIONS (1)
  - Drug abuse [None]
